FAERS Safety Report 12115492 (Version 1)
Quarter: 2016Q1

REPORT INFORMATION
  Report Type: Spontaneous
  Country: GB (occurrence: GB)
  Receive Date: 20160225
  Receipt Date: 20160225
  Transmission Date: 20160526
  Serious: Yes (Other)
  Sender: FDA-Public Use
  Company Number: GB-PFIZER INC-2016106512

PATIENT
  Age: 49 Year
  Sex: Female
  Weight: 68 kg

DRUGS (4)
  1. BUDESONIDE. [Concomitant]
     Active Substance: BUDESONIDE
     Dosage: UNK
  2. AZITHROMYCIN ANHYDROUS. [Suspect]
     Active Substance: AZITHROMYCIN ANHYDROUS
     Dosage: 500 MG, 1X/DAY
     Route: 048
     Dates: start: 20150930, end: 20151002
  3. SALBUTAMOL SULFATE [Concomitant]
     Active Substance: ALBUTEROL SULFATE
     Dosage: UNK
  4. SALMETEROL XINAFOATE [Interacting]
     Active Substance: SALMETEROL XINAFOATE
     Dosage: 200 UG, 1X/DAY

REACTIONS (4)
  - Dizziness [Unknown]
  - Heart rate decreased [Recovered/Resolved]
  - Drug interaction [Unknown]
  - Extrasystoles [Recovering/Resolving]

NARRATIVE: CASE EVENT DATE: 20151023
